FAERS Safety Report 11842234 (Version 1)
Quarter: 2015Q4

REPORT INFORMATION
  Report Type: Spontaneous
  Country: GB (occurrence: GB)
  Receive Date: 20151216
  Receipt Date: 20151216
  Transmission Date: 20160305
  Serious: Yes (Other)
  Sender: FDA-Public Use
  Company Number: GB-TEVA-616530ACC

PATIENT
  Age: 86 Year
  Sex: Female
  Weight: 88 kg

DRUGS (7)
  1. HYDROXOCOBALAMIN [Concomitant]
     Active Substance: HYDROXOCOBALAMIN
     Dosage: AS DIRECTED
     Dates: start: 20150621
  2. OMEPRAZOLE. [Concomitant]
     Active Substance: OMEPRAZOLE
     Dosage: 1 DOSAGE FORMS DAILY;
     Dates: start: 20150621
  3. BENDROFLUMETHIAZIDE [Concomitant]
     Active Substance: BENDROFLUMETHIAZIDE
     Dosage: 1 DOSAGE FORMS DAILY; 1 DOSAGE FORM EACH MORNING
     Dates: start: 20150621
  4. NITROFURANTOIN. [Suspect]
     Active Substance: NITROFURANTOIN
     Indication: URINARY TRACT INFECTION
     Dosage: 200 MILLIGRAM DAILY;
  5. CODEINE PHOSPHATE [Concomitant]
     Active Substance: CODEINE PHOSPHATE
     Dosage: TAKE ONE OR TWO 4 TIMES/DAY
     Dates: start: 20151023, end: 20151120
  6. LOPERAMIDE [Concomitant]
     Active Substance: LOPERAMIDE
     Dosage: THREE TIMES DAILY WHEN REQUIRED
     Dates: start: 20150621
  7. TRIMETHOPRIM. [Concomitant]
     Active Substance: TRIMETHOPRIM
     Dosage: 2 DOSAGE FORMS DAILY;
     Dates: start: 20151022, end: 20151029

REACTIONS (2)
  - Lethargy [Recovering/Resolving]
  - Drug-induced liver injury [Recovering/Resolving]
